FAERS Safety Report 4650073-6 (Version None)
Quarter: 2005Q2

REPORT INFORMATION
  Report Type: 
  Country: None (occurrence: None)
  Receive Date: 20050428
  Receipt Date: 20050415
  Transmission Date: 20051028
  Serious: Yes (Death)
  Sender: FDA-Public Use
  Company Number: 2005-126465-NL

PATIENT
  Age: 42 Year
  Sex: Male

DRUGS (5)
  1. MIRTAZAPINE [Suspect]
     Indication: DEPRESSION
     Dosage: 30 MG/10 MG/30 MG ORAL
     Route: 048
     Dates: start: 20050201, end: 20050201
  2. MIRTAZAPINE [Suspect]
     Indication: DEPRESSION
     Dosage: 30 MG/10 MG/30 MG ORAL
     Route: 048
     Dates: start: 20050202, end: 20050209
  3. MIRTAZAPINE [Suspect]
     Indication: DEPRESSION
     Dosage: 30 MG/10 MG/30 MG ORAL
     Route: 048
     Dates: start: 20050210, end: 20050211
  4. CLOBAZAM [Concomitant]
  5. ZOPICLONE [Concomitant]

REACTIONS (4)
  - COMPLETED SUICIDE [None]
  - INJURY ASPHYXIATION [None]
  - INTENTIONAL SELF-INJURY [None]
  - TREATMENT NONCOMPLIANCE [None]
